FAERS Safety Report 9409682 (Version 1)
Quarter: 2013Q2

REPORT INFORMATION
  Report Type: Spontaneous
  Country: US (occurrence: None)
  Receive Date: 20130605
  Receipt Date: 20130605
  Transmission Date: 20140414
  Serious: Yes (Other)
  Sender: FDA-Public Use
  Company Number: TPA2013A04450

PATIENT
  Sex: 0

DRUGS (2)
  1. PIOGLITAZONE HYDROCHLORIDE CODE NOT BROKEN (PIOGLITAZONE HYDROCHLORIDE) [Suspect]
     Indication: CARDIOVASCULAR EVENT PROPHYLAXIS
  2. PIOGLITAZONE HYDROCHLORIDE CODE NOT BROKEN (PIOGLITAZONE HYDROCHLORIDE) [Suspect]
     Indication: ISCHAEMIC HEART DISEASE PROPHYLAXIS

REACTIONS (1)
  - Epidural lipomatosis [None]
